FAERS Safety Report 25854274 (Version 1)
Quarter: 2025Q3

REPORT INFORMATION
  Report Type: Report from Study
  Country: MY (occurrence: MY)
  Receive Date: 20250926
  Receipt Date: 20250926
  Transmission Date: 20251021
  Serious: Yes (Other)
  Sender: EXELIXIS
  Company Number: MY-IPSEN Group, Research and Development-2025-23277

PATIENT
  Age: 58 Year
  Sex: Male
  Weight: 70 kg

DRUGS (2)
  1. CABOMETYX [Suspect]
     Active Substance: CABOZANTINIB S-MALATE
     Indication: Renal cell carcinoma
     Dosage: 60 MG, QD
     Route: 048
     Dates: start: 20250820
  2. CABOMETYX [Suspect]
     Active Substance: CABOZANTINIB S-MALATE
     Dosage: 40 MG, QD
     Route: 048
     Dates: start: 20250911

REACTIONS (8)
  - Vitamin D deficiency [Unknown]
  - Sarcopenia [Unknown]
  - Fatigue [Unknown]
  - Hypertension [Unknown]
  - Skin ulcer [Unknown]
  - Pain in extremity [Unknown]
  - Dysphonia [Unknown]
  - Proteinuria [Unknown]

NARRATIVE: CASE EVENT DATE: 20250822
